FAERS Safety Report 9372277 (Version 1)
Quarter: 2013Q2

REPORT INFORMATION
  Report Type: Report from Study
  Country: US (occurrence: US)
  Receive Date: 20130627
  Receipt Date: 20130627
  Transmission Date: 20140414
  Serious: No
  Sender: FDA-Public Use
  Company Number: US-MYLANLABS-2012S1019201

PATIENT
  Age: 39 Year
  Sex: Female

DRUGS (5)
  1. CLOZAPINE TABLETS [Suspect]
     Indication: SCHIZOPHRENIA
     Route: 048
     Dates: start: 20120503, end: 20120613
  2. PROVIGIL [Concomitant]
  3. PRISTIQ [Concomitant]
  4. TRAZODONE [Concomitant]
  5. HALDOL [Concomitant]

REACTIONS (2)
  - Drooling [Recovered/Resolved]
  - Lethargy [Recovered/Resolved]
